FAERS Safety Report 24345147 (Version 3)
Quarter: 2024Q4

REPORT INFORMATION
  Report Type: Report from Study
  Country: US (occurrence: US)
  Receive Date: 20240920
  Receipt Date: 20241226
  Transmission Date: 20250115
  Serious: Yes (Hospitalization, Other)
  Sender: ABBVIE
  Company Number: US-ABBVIE-5927317

PATIENT
  Age: 75 Year
  Sex: Male
  Weight: 82 kg

DRUGS (10)
  1. CREON [Suspect]
     Active Substance: PANCRELIPASE AMYLASE\PANCRELIPASE LIPASE\PANCRELIPASE PROTEASE
     Indication: Diarrhoea
     Dosage: CREON 36000 TWO WITH MEALS, ONCE WITH SNACK?LAST ADMIN DATE: 2024
     Route: 048
     Dates: start: 202406
  2. CREON [Suspect]
     Active Substance: PANCRELIPASE AMYLASE\PANCRELIPASE LIPASE\PANCRELIPASE PROTEASE
     Indication: Diarrhoea
     Dosage: TIME INTERVAL: 0.33333333 DAYS: TAKEN WITH FOOD EVERY TIME AS PRESCRIBED?36K-114K CAPSULE?LAST AD...
     Route: 048
     Dates: start: 20240309
  3. CREON [Suspect]
     Active Substance: PANCRELIPASE AMYLASE\PANCRELIPASE LIPASE\PANCRELIPASE PROTEASE
     Indication: Diarrhoea
     Route: 048
     Dates: start: 20240702
  4. TAMSULOSIN [Concomitant]
     Active Substance: TAMSULOSIN
     Indication: Urinary tract obstruction
     Dates: start: 202405
  5. SIMVASTATIN [Concomitant]
     Active Substance: SIMVASTATIN
     Indication: Product used for unknown indication
     Dosage: 10 MG?DAILY AT BEDTIME
     Route: 048
     Dates: start: 2021
  6. LISINOPRIL [Concomitant]
     Active Substance: LISINOPRIL
     Indication: Blood pressure measurement
     Dosage: 40 MG?EVERY MORNING
     Route: 048
     Dates: start: 2021
  7. FLOMAX [Concomitant]
     Active Substance: TAMSULOSIN HYDROCHLORIDE
     Indication: Urinary tract obstruction
     Dosage: SR.24H? EVERY EVENING
     Route: 048
     Dates: start: 202405
  8. FLUOXETINE [Concomitant]
     Active Substance: FLUOXETINE HYDROCHLORIDE
     Indication: Behaviour disorder
     Dosage: 60 MG?DAILY AT BEDTIME
     Route: 048
     Dates: start: 2004
  9. Moavasten [Concomitant]
     Indication: Product used for unknown indication
     Dates: start: 2021
  10. VITAMIN D3 [Concomitant]
     Active Substance: CHOLECALCIFEROL
     Indication: Product used for unknown indication
     Dosage: 3,000 UNIT?1 TABLET ONCE DAILY
     Route: 048

REACTIONS (9)
  - Hospitalisation [Recovered/Resolved]
  - Stent placement [Recovered/Resolved]
  - Off label use [Unknown]
  - Post procedural complication [Unknown]
  - Device placement issue [Recovering/Resolving]
  - Dry mouth [Unknown]
  - Post procedural diarrhoea [Unknown]
  - Diarrhoea [Recovered/Resolved]
  - Stent placement [Unknown]

NARRATIVE: CASE EVENT DATE: 20230101
